FAERS Safety Report 8283280-4 (Version None)
Quarter: 2012Q2

REPORT INFORMATION
  Report Type: 
  Country: None (occurrence: None)
  Receive Date: 20120413
  Receipt Date: 20120407
  Transmission Date: 20120825
  Serious: Yes (Other)
  Sender: FDA-Public Use
  Company Number: IT-TEVA-332629ISR

PATIENT
  Sex: Male

DRUGS (3)
  1. PERINDOPRIL RATIOPHARM [Suspect]
  2. PERINDOPRIL RATIOPHARM [Suspect]
  3. LERCANIDIPINE [Suspect]

REACTIONS (2)
  - HAEMORRHAGE [None]
  - BLOOD PRESSURE INCREASED [None]
